FAERS Safety Report 4971547-4 (Version None)
Quarter: 2006Q2

REPORT INFORMATION
  Report Type: 
  Country: None (occurrence: None)
  Receive Date: 20060413
  Receipt Date: 20060404
  Transmission Date: 20061013
  Serious: Yes (Hospitalization)
  Sender: FDA-Public Use
  Company Number: JP-JNJFOC-20060200941

PATIENT
  Sex: Female
  Weight: 42 kg

DRUGS (9)
  1. REMICADE [Suspect]
     Route: 042
  2. REMICADE [Suspect]
     Route: 042
  3. REMICADE [Suspect]
     Indication: RHEUMATOID ARTHRITIS
     Route: 042
  4. RHEUMATREX [Suspect]
     Indication: RHEUMATOID ARTHRITIS
     Route: 048
  5. SELBEX [Suspect]
     Indication: GASTROINTESTINAL DISORDER THERAPY
     Route: 048
  6. VOLTAREN [Suspect]
     Indication: RHEUMATOID ARTHRITIS
     Route: 048
  7. JUVELA N [Suspect]
     Indication: PERIPHERAL CIRCULATORY FAILURE
     Route: 048
  8. PREDNISOLONE [Suspect]
     Indication: RHEUMATOID ARTHRITIS
     Route: 048
  9. PARIET [Suspect]
     Indication: GASTROINTESTINAL DISORDER THERAPY
     Route: 048

REACTIONS (1)
  - MYCOBACTERIAL INFECTION [None]
